FAERS Safety Report 7280504-7 (Version None)
Quarter: 2011Q1

REPORT INFORMATION
  Report Type: 
  Country: None (occurrence: None)
  Receive Date: 20110208
  Receipt Date: 20110126
  Transmission Date: 20110831
  Serious: Yes (Hospitalization, Other)
  Sender: FDA-Public Use
  Company Number: PHHY2010NL86279

PATIENT
  Age: 61 Year
  Sex: Male

DRUGS (16)
  1. CANDESARTAN CILEXETIL [Suspect]
  2. ACETYLSALICYLIC ACID [Concomitant]
     Dosage: 80 MG, QD
  3. ATORVASTATIN [Concomitant]
     Dosage: 80 MG, QD
  4. CARBAMAZEPINE [Concomitant]
     Dosage: 800 MG, QD
  5. PANTOPRAZOLE [Concomitant]
     Dosage: 40 MG, QD
  6. METOPROLOL TARTRATE [Concomitant]
     Dosage: UNK
  7. AMITRIPTYLINE HCL [Concomitant]
     Dosage: 50 MG, QD
  8. ISOSORBIDE MONONITRATE [Concomitant]
     Dosage: 50 MG, QD
  9. ENALAPRIL MALEATE [Suspect]
     Dosage: 10MG, BID
  10. ENALAPRIL MALEATE [Suspect]
     Dosage: 20MG, BID
  11. ENALAPRIL MALEATE [Suspect]
     Dosage: 20 MG, BID
  12. SPIRONOLACTONE [Suspect]
     Dosage: 50 MG, QD
  13. FUROSEMIDE [Suspect]
     Dosage: 80 MG, BID
  14. ATENOLOL [Concomitant]
     Dosage: 100 MG, QD
  15. CLONAZEPAM [Concomitant]
     Dosage: 1.5 MG, QD
  16. INSULIN [Concomitant]
     Dosage: UNK

REACTIONS (15)
  - HYPERKALAEMIA [None]
  - TACHYPNOEA [None]
  - BLOOD CREATININE INCREASED [None]
  - HAEMOGLOBIN DECREASED [None]
  - ELECTROCARDIOGRAM QRS COMPLEX PROLONGED [None]
  - BLOOD SODIUM DECREASED [None]
  - BLOOD PRESSURE DECREASED [None]
  - BLOOD UREA INCREASED [None]
  - BLOOD POTASSIUM INCREASED [None]
  - RENAL FAILURE ACUTE [None]
  - HEART RATE DECREASED [None]
  - ABDOMINAL TENDERNESS [None]
  - BLOOD BICARBONATE ABNORMAL [None]
  - ELECTROCARDIOGRAM T WAVE PEAKED [None]
  - DUODENAL SCARRING [None]
